FAERS Safety Report 6988671-7 (Version None)
Quarter: 2010Q3

REPORT INFORMATION
  Report Type: 
  Country: None (occurrence: None)
  Receive Date: 20100827
  Receipt Date: 20100603
  Transmission Date: 20110219
  Serious: Yes (Other)
  Sender: FDA-Public Use
  Company Number: 2010070574

PATIENT
  Age: 60 Year
  Sex: Female
  Weight: 68 kg

DRUGS (4)
  1. VFEND [Suspect]
     Indication: SINUSITIS FUNGAL
     Dosage: 200 MG, 2X/DAY, ORAL
     Route: 048
     Dates: start: 20100428, end: 20100513
  2. ALEVE [Concomitant]
  3. SUDAFED 12 HOUR [Concomitant]
  4. EXCEDRIN EXTRA STRENGTH (ACETYLSALICYLIC ACID, CAFFEINE, PARACETAMOL) [Concomitant]

REACTIONS (2)
  - DRUG INEFFECTIVE [None]
  - SKIN EXFOLIATION [None]
